FAERS Safety Report 11872918 (Version 1)
Quarter: 2015Q4

REPORT INFORMATION
  Report Type: Spontaneous
  Country: US (occurrence: US)
  Receive Date: 20151228
  Receipt Date: 20151228
  Transmission Date: 20160305
  Serious: Yes (Other)
  Sender: FDA-Public Use
  Company Number: US-PFIZER INC-2015422570

PATIENT
  Sex: Female

DRUGS (1)
  1. PRISTIQ EXTENDED RELEASE [Suspect]
     Active Substance: DESVENLAFAXINE SUCCINATE
     Indication: DEPRESSION
     Dosage: UNK, 3X/DAY
     Route: 048
     Dates: start: 201406

REACTIONS (3)
  - Condition aggravated [Not Recovered/Not Resolved]
  - Medication residue present [Not Recovered/Not Resolved]
  - Depression [Not Recovered/Not Resolved]
